FAERS Safety Report 8446133-4 (Version None)
Quarter: 2012Q2

REPORT INFORMATION
  Report Type: 
  Country: None (occurrence: None)
  Receive Date: 20120618
  Receipt Date: 20120607
  Transmission Date: 20120825
  Serious: Yes (Disabling, Other)
  Sender: FDA-Public Use
  Company Number: US-ASTRAZENECA-2012SE39860

PATIENT
  Age: 56 Year
  Sex: Male
  Weight: 140.6 kg

DRUGS (6)
  1. WELLBUTRIN [Concomitant]
  2. DIABETES [Concomitant]
  3. HIGH BLOOD PRESSURE MEDICATION [Concomitant]
  4. SEROQUEL XR [Suspect]
     Route: 048
  5. EYE MEDICATION [Concomitant]
     Indication: OPHTHALMOLOGICAL EXAMINATION
  6. SEROQUEL XR [Suspect]
     Indication: SCHIZOPHRENIA
     Route: 048

REACTIONS (4)
  - ABASIA [None]
  - BURNING SENSATION [None]
  - BALANCE DISORDER [None]
  - STRABISMUS [None]
